FAERS Safety Report 9423695 (Version 1)
Quarter: 2013Q3

REPORT INFORMATION
  Report Type: Spontaneous
  Country: IT (occurrence: IT)
  Receive Date: 20130727
  Receipt Date: 20130727
  Transmission Date: 20140515
  Serious: Yes (Death)
  Sender: FDA-Public Use
  Company Number: PHHY2013IT079653

PATIENT
  Sex: Male

DRUGS (8)
  1. MEROPENEM [Suspect]
     Indication: BRAIN ABSCESS
     Dosage: 6 G, QD
     Route: 042
     Dates: start: 20130605, end: 20130707
  2. METRONIDAZOLE [Suspect]
     Indication: BRAIN ABSCESS
     Dosage: 1.5 MG, QD
     Route: 042
     Dates: start: 20130605, end: 20130707
  3. DEXAMETHASONE [Concomitant]
  4. PARNAPARIN [Concomitant]
  5. OMEPRAZOLE [Concomitant]
  6. ENALAPRIL [Concomitant]
  7. LEVOTHYROXIN [Concomitant]
  8. DUTASTERIDE [Concomitant]

REACTIONS (2)
  - Agranulocytosis [Fatal]
  - Thrombocytopenia [Fatal]
